FAERS Safety Report 9197885 (Version 1)
Quarter: 2013Q1

REPORT INFORMATION
  Report Type: Spontaneous
  Country: CA (occurrence: CA)
  Receive Date: 20130328
  Receipt Date: 20130328
  Transmission Date: 20140127
  Serious: Yes (Hospitalization)
  Sender: FDA-Public Use
  Company Number: CA-TEVA-394479USA

PATIENT
  Age: 82 Year
  Sex: Female
  Weight: 80 kg

DRUGS (7)
  1. ALENDRONATE [Suspect]
     Dosage: 10 MILLIGRAM DAILY;
     Route: 048
  2. ASA [Concomitant]
  3. CALCIUM W/VITAMIN D NOS [Concomitant]
  4. CALCIUM W/VITAMIN D NOS [Concomitant]
  5. FUROSEMIDE [Concomitant]
  6. LOSARTAN [Concomitant]
  7. PANTOPRAZOLE [Concomitant]

REACTIONS (2)
  - Palpitations [Unknown]
  - Condition aggravated [Unknown]
